FAERS Safety Report 8055409 (Version 2)
Quarter: 2012Q4

REPORT INFORMATION
  Report Type: 
  Country: US (occurrence: US)
  Receive Date: 20110726
  Receipt Date: 20120906
  Transmission Date: 20130627
  Serious: Yes (Other)
  Sender: FDA-Public Use
  Company Number: US-US-EMD SERONO, INC.-7071974

PATIENT
  Sex: Male

DRUGS (5)
  1. REBIF [Suspect]
     Indication: MULTIPLE SCLEROSIS
     Route: 058
     Dates: start: 20050117, end: 20110301
  2. VERAPAMIL [Concomitant]
     Indication: HYPERTENSION
  3. LISINOPRIL [Concomitant]
     Indication: HYPERTENSION
  4. NORTRIPYLINE [Concomitant]
     Indication: MULTIPLE SCLEROSIS
  5. NORTRIPYLINE [Concomitant]
     Indication: SLEEP DISORDER

REACTIONS (2)
  - Malignant melanoma [Not Recovered/Not Resolved]
  - Vitamin B12 deficiency [Unknown]
